FAERS Safety Report 8825039 (Version 2)
Quarter: 2013Q1

REPORT INFORMATION
  Report Type: Spontaneous
  Country: US (occurrence: US)
  Receive Date: 20121004
  Receipt Date: 20130208
  Transmission Date: 20140127
  Serious: Yes (Death)
  Sender: FDA-Public Use
  Company Number: US-ROCHE-1131016

PATIENT
  Sex: Female

DRUGS (12)
  1. RITUXAN [Suspect]
     Indication: LYMPHOMA
     Route: 042
     Dates: start: 20010531, end: 20010531
  2. RITUXAN [Suspect]
     Indication: MALIGNANT LYMPHOID NEOPLASM
     Dosage: INCREASED TO 50 ML/HR
     Route: 065
  3. RITUXAN [Suspect]
     Indication: OFF LABEL USE
  4. RITUXAN [Suspect]
     Indication: LYMPHOMA
  5. BENADRYL [Concomitant]
     Route: 065
     Dates: start: 20010530
  6. BENADRYL [Concomitant]
     Route: 050
     Dates: start: 20010531
  7. TYLENOL [Concomitant]
     Route: 065
     Dates: start: 20010530
  8. TYLENOL [Concomitant]
     Route: 048
     Dates: start: 20010531
  9. HEPARIN [Concomitant]
     Dosage: 200 UNITS
     Route: 065
  10. NORMAL SALINE [Concomitant]
     Dosage: 500 CC
     Route: 065
     Dates: start: 20010530
  11. NORMAL SALINE [Concomitant]
     Route: 065
     Dates: start: 20010531
  12. OXYCODONE [Concomitant]
     Route: 065

REACTIONS (5)
  - Lymphoma [Fatal]
  - Dyspnoea [Unknown]
  - Increased bronchial secretion [Unknown]
  - Respiratory tract congestion [Unknown]
  - Hyperhidrosis [Unknown]
